FAERS Safety Report 15245697 (Version 1)
Quarter: 2018Q3

REPORT INFORMATION
  Report Type: Spontaneous
  Country: US (occurrence: US)
  Receive Date: 20180713
  Receipt Date: 20180713
  Transmission Date: 20181010
  Serious: Yes (Other)
  Sender: FDA-Public Use
  Company Number: None

PATIENT
  Age: 77 Year
  Sex: Female
  Weight: 42.18 kg

DRUGS (11)
  1. ADVAIR HFA [Concomitant]
     Active Substance: FLUTICASONE PROPIONATE\SALMETEROL XINAFOATE
  2. ATORVASTATIN [Concomitant]
     Active Substance: ATORVASTATIN
  3. INCRUSE ELLIPTA [Concomitant]
     Active Substance: UMECLIDINIUM BROMIDE
  4. LISINOPROL [Concomitant]
     Active Substance: LISINOPRIL
  5. METAPROLOL [Concomitant]
     Active Substance: METOPROLOL
  6. ASPIRIN. [Concomitant]
     Active Substance: ASPIRIN
  7. PREDNISONE. [Suspect]
     Active Substance: PREDNISONE
     Indication: RESPIRATORY TRACT INFECTION
     Dosage: ?          QUANTITY:30 DF DOSAGE FORM;?
     Route: 048
     Dates: start: 20180626, end: 20180705
  8. ONE A DAY WOMAN^S VITAMIN [Concomitant]
  9. VITAMIN D [Concomitant]
     Active Substance: CHOLECALCIFEROL
  10. VITAMIN C [Concomitant]
     Active Substance: ASCORBIC ACID
  11. CALCIUM/MAGNESIUM [Concomitant]
     Active Substance: CALCIUM\MAGNESIUM

REACTIONS (7)
  - Back pain [None]
  - Fatigue [None]
  - Decreased appetite [None]
  - Asthenia [None]
  - Chest discomfort [None]
  - Muscular weakness [None]
  - Wheezing [None]

NARRATIVE: CASE EVENT DATE: 20180626
